FAERS Safety Report 11414218 (Version 3)
Quarter: 2015Q3

REPORT INFORMATION
  Report Type: Report from Study
  Country: VE (occurrence: VE)
  Receive Date: 20150824
  Receipt Date: 20150908
  Transmission Date: 20151125
  Serious: Yes (Hospitalization, Other)
  Sender: FDA-Public Use
  Company Number: PHHY2015VE101083

PATIENT
  Sex: Female

DRUGS (2)
  1. HYZAAR PLUS [Concomitant]
     Indication: BLOOD PRESSURE MEASUREMENT
     Dosage: 125 MG, QD
     Route: 065
  2. ACLASTA [Suspect]
     Active Substance: ZOLEDRONIC ACID
     Indication: OSTEOPENIA
     Route: 065
     Dates: start: 2012

REACTIONS (6)
  - Pain [Recovering/Resolving]
  - Musculoskeletal pain [Unknown]
  - Rotator cuff syndrome [Recovering/Resolving]
  - General physical condition abnormal [Recovering/Resolving]
  - Condition aggravated [Unknown]
  - Pneumonia [Recovered/Resolved]

NARRATIVE: CASE EVENT DATE: 2012
